FAERS Safety Report 10861836 (Version 3)
Quarter: 2015Q1

REPORT INFORMATION
  Report Type: Spontaneous
  Country: JP (occurrence: JP)
  Receive Date: 20150224
  Receipt Date: 20150318
  Transmission Date: 20150721
  Serious: Yes (Hospitalization, Other)
  Sender: FDA-Public Use
  Company Number: JP-TEVA-2015-JP-000095J

PATIENT
  Age: 70 Year
  Sex: Female

DRUGS (5)
  1. LANSOPRAZOLE OD TABLET 15MG TEVA [Suspect]
     Active Substance: LANSOPRAZOLE
     Indication: PRODUCT USED FOR UNKNOWN INDICATION
     Route: 048
     Dates: start: 20150203, end: 20150218
  2. PREDONINE [Concomitant]
     Active Substance: PREDNISOLONE\PREDNISOLONE ACETATE\PREDNISOLONE SODIUM SUCCINATE
     Dosage: NO DOSAGE INFORMATION
     Route: 048
     Dates: start: 2011
  3. FUROSEMIDE. [Concomitant]
     Active Substance: FUROSEMIDE
     Dosage: NO DOSAGE INFORMATION
     Route: 048
     Dates: start: 201112
  4. DENOSINE [Concomitant]
     Active Substance: GANCICLOVIR
     Dosage: NO DOSAGE INFORMATION
     Route: 041
     Dates: start: 20150205
  5. SULFAMETHOXAZOLE AND TRIMETHOPRIM [Concomitant]
     Active Substance: SULFAMETHOXAZOLE\TRIMETHOPRIM
     Dosage: NO DOSAGE INFORMATION
     Route: 041
     Dates: start: 20150120

REACTIONS (1)
  - Interstitial lung disease [Recovered/Resolved]

NARRATIVE: CASE EVENT DATE: 20150218
